FAERS Safety Report 17817109 (Version 3)
Quarter: 2020Q3

REPORT INFORMATION
  Report Type: Spontaneous
  Country: FR (occurrence: FR)
  Receive Date: 20200522
  Receipt Date: 20200813
  Transmission Date: 20201102
  Serious: Yes (Other)
  Sender: FDA-Public Use
  Company Number: FR-CELGENEUS-FRA-20200504353

PATIENT
  Age: 79 Year
  Sex: Female
  Weight: 56 kg

DRUGS (8)
  1. L?THYROX [Concomitant]
     Active Substance: LEVOTHYROXINE SODIUM
     Indication: PRODUCT USED FOR UNKNOWN INDICATION
     Route: 065
  2. VIDAZA [Suspect]
     Active Substance: AZACITIDINE
     Route: 041
     Dates: start: 202003
  3. OMEPRAZOLE. [Concomitant]
     Active Substance: OMEPRAZOLE
     Indication: PRODUCT USED FOR UNKNOWN INDICATION
     Route: 065
  4. ALLOPURINOL. [Concomitant]
     Active Substance: ALLOPURINOL
     Indication: PRODUCT USED FOR UNKNOWN INDICATION
     Route: 065
  5. DARBEPOETIN ALFA [Concomitant]
     Active Substance: DARBEPOETIN ALFA
     Indication: CYTOPENIA
     Dosage: DOSE NOT PROVIDED
     Route: 065
     Dates: start: 201609
  6. ARANESP [Concomitant]
     Active Substance: DARBEPOETIN ALFA
     Indication: CYTOPENIA
     Route: 065
     Dates: start: 201609
  7. VIDAZA [Suspect]
     Active Substance: AZACITIDINE
     Indication: MYELODYSPLASTIC SYNDROME
     Route: 041
     Dates: start: 201411, end: 201909
  8. GRANOCYTE [Concomitant]
     Active Substance: LENOGRASTIM
     Indication: CYTOPENIA
     Dosage: DOSE NOT PROVIDED
     Route: 065
     Dates: start: 201609

REACTIONS (3)
  - Acute myeloid leukaemia recurrent [Unknown]
  - Transformation to acute myeloid leukaemia [Unknown]
  - Therapy partial responder [Unknown]

NARRATIVE: CASE EVENT DATE: 202003
